FAERS Safety Report 7320658-7 (Version None)
Quarter: 2011Q1

REPORT INFORMATION
  Report Type: 
  Country: None (occurrence: None)
  Receive Date: 20110223
  Receipt Date: 20110223
  Transmission Date: 20110831
  Serious: No
  Sender: FDA-Public Use
  Company Number: None

PATIENT
  Age: 53 Year
  Sex: Female
  Weight: 81.6475 kg

DRUGS (1)
  1. NICARDIPINE HYDROCHLORIDE [Suspect]

REACTIONS (5)
  - PRURITUS [None]
  - PALPITATIONS [None]
  - FLANK PAIN [None]
  - YELLOW SKIN [None]
  - PRODUCT SUBSTITUTION ISSUE [None]
